FAERS Safety Report 5370991-3 (Version None)
Quarter: 2007Q2

REPORT INFORMATION
  Report Type: 
  Country: None (occurrence: None)
  Receive Date: 20070626
  Receipt Date: 20070613
  Transmission Date: 20071010
  Serious: Yes (Hospitalization)
  Sender: FDA-Public Use
  Company Number: FR-ELI_LILLY_AND_COMPANY-FR200704006412

PATIENT
  Age: 70 Year
  Sex: Female

DRUGS (4)
  1. FORTEO [Suspect]
     Indication: OSTEOPOROSIS
     Dosage: 20 UG, DAILY (1/D)
     Route: 058
     Dates: start: 20050929, end: 20070301
  2. PLAVIX [Concomitant]
  3. ATORVASTATIN CALCIUM [Concomitant]
  4. OROCAL D(3) [Concomitant]
     Dosage: 2 D/F, DAILY (1/D)
     Route: 048
     Dates: start: 20050923

REACTIONS (1)
  - BREAST CANCER [None]
